FAERS Safety Report 7645465-7 (Version None)
Quarter: 2011Q3

REPORT INFORMATION
  Report Type: 
  Country: None (occurrence: None)
  Receive Date: 20110729
  Receipt Date: 20110719
  Transmission Date: 20111222
  Serious: Yes (Other)
  Sender: FDA-Public Use
  Company Number: CA-ELI_LILLY_AND_COMPANY-CA201107004959

PATIENT
  Sex: Male
  Weight: 97.324 kg

DRUGS (18)
  1. ZYPREXA [Suspect]
     Dosage: 40 MG, QD
  2. ZYPREXA ZYDIS [Suspect]
     Dosage: 5 MG, QD
  3. IMOVANE [Concomitant]
  4. ZYPREXA ZYDIS [Suspect]
     Dosage: 10 MG, QD
  5. RISPERDAL [Concomitant]
  6. FLOVENT [Concomitant]
  7. VENTOLIN HFA [Concomitant]
  8. ZYPREXA [Suspect]
     Dosage: 10 MG, QD
  9. ZYPREXA ZYDIS [Suspect]
     Indication: SCHIZOPHRENIA, PARANOID TYPE
     Dosage: 9.5 MG, QD
  10. ZYPREXA ZYDIS [Suspect]
     Dosage: 30 MG, QD
  11. ZYPREXA [Suspect]
     Indication: SCHIZOPHRENIA, PARANOID TYPE
     Dosage: 25 MG, QD
  12. ZYPREXA ZYDIS [Suspect]
     Dosage: 20 MG, QD
  13. ATIVAN [Concomitant]
  14. ZOLOFT [Concomitant]
  15. ZYPREXA ZYDIS [Suspect]
     Dosage: 15 MG, QD
  16. RITALIN [Concomitant]
  17. ZYPREXA ZYDIS [Suspect]
     Dosage: 25 MG, QD
  18. CLOZAPINE [Concomitant]

REACTIONS (9)
  - WEIGHT INCREASED [None]
  - BLOOD TRIGLYCERIDES INCREASED [None]
  - OVERDOSE [None]
  - RASH [None]
  - IMPAIRED FASTING GLUCOSE [None]
  - ALANINE AMINOTRANSFERASE INCREASED [None]
  - DIABETES MELLITUS [None]
  - WHITE BLOOD CELL COUNT INCREASED [None]
  - DIZZINESS [None]
